FAERS Safety Report 8850264 (Version 3)
Quarter: 2014Q2

REPORT INFORMATION
  Report Type: Report from Study
  Country: US (occurrence: US)
  Receive Date: 20121019
  Receipt Date: 20140610
  Transmission Date: 20141212
  Serious: Yes (Congenital Anomaly)
  Sender: FDA-Public Use
  Company Number: US-GILEAD-2012-0063133

PATIENT
  Age: 0 Day
  Sex: Male
  Weight: 1.84 kg

DRUGS (9)
  1. EMTRICITABINE/TENOFOVIR DISOPROXIL FUMARATE [Suspect]
     Indication: HIV INFECTION
     Dosage: 1 DF, QD
     Route: 064
     Dates: start: 20120620, end: 20120915
  2. PREZISTA [Suspect]
     Indication: HIV INFECTION
     Dosage: 800 MG, QD
     Route: 064
     Dates: start: 20120620, end: 20120915
  3. NORVIR [Suspect]
     Indication: HIV INFECTION
     Dosage: 100 MG, QD
     Route: 064
     Dates: start: 20120620, end: 20120915
  4. RETROVIR [Suspect]
     Indication: HIV INFECTION
     Dosage: 1 DF, BID
     Route: 064
     Dates: start: 20120915, end: 20120915
  5. RETROVIR [Suspect]
     Dosage: 2 DF, QD
     Route: 064
     Dates: start: 20120915, end: 20120915
  6. PCP                                /00013304/ [Suspect]
     Indication: SUBSTANCE ABUSE
     Dosage: UNK
     Route: 064
     Dates: start: 20120123, end: 20120915
  7. OPIAT [Suspect]
     Indication: SUBSTANCE ABUSE
     Dosage: UNK
     Route: 064
     Dates: start: 20120123, end: 20120915
  8. TRIMETHOPRIM SULFAMETHOXAZOLE [Suspect]
     Indication: PRODUCT USED FOR UNKNOWN INDICATION
     Dosage: UNK
     Route: 064
  9. BENZODIAZEPINE DERIVATIVES [Suspect]
     Indication: PRODUCT USED FOR UNKNOWN INDICATION
     Dosage: UNK
     Route: 064

REACTIONS (3)
  - Polydactyly [Unknown]
  - Premature baby [None]
  - Maternal drugs affecting foetus [None]
